FAERS Safety Report 9937639 (Version 2)
Quarter: 2014Q1

REPORT INFORMATION
  Report Type: Spontaneous
  Country: US (occurrence: US)
  Receive Date: 20140303
  Receipt Date: 20140308
  Transmission Date: 20141002
  Serious: Yes (Hospitalization, Other)
  Sender: FDA-Public Use
  Company Number: US-009507513-1402USA012882

PATIENT
  Age: 43 Year
  Sex: Male

DRUGS (1)
  1. TEMODAR [Suspect]
     Indication: LYMPHOMA
     Dosage: UNK

REACTIONS (2)
  - Lymphoma [Not Recovered/Not Resolved]
  - Endotracheal intubation [Not Recovered/Not Resolved]
